FAERS Safety Report 6690334-2 (Version None)
Quarter: 2010Q2

REPORT INFORMATION
  Report Type: 
  Country: None (occurrence: None)
  Receive Date: 20100421
  Receipt Date: 20100415
  Transmission Date: 20101027
  Serious: Yes (Other)
  Sender: FDA-Public Use
  Company Number: US-PERRIGO-10US008654

PATIENT
  Sex: Female
  Weight: 52.154 kg

DRUGS (1)
  1. DIPHENHYDRAMINE HYDROCHLORIDE 25 MG 462 [Suspect]
     Indication: EAR DISCOMFORT
     Dosage: 50 MG, SINGLE
     Route: 048
     Dates: start: 20100406, end: 20100406

REACTIONS (8)
  - ABDOMINAL PAIN UPPER [None]
  - CONVULSION [None]
  - EAR DISCOMFORT [None]
  - FALL [None]
  - HYPERSENSITIVITY [None]
  - SWOLLEN TONGUE [None]
  - URTICARIA [None]
  - VOMITING [None]
